FAERS Safety Report 10682757 (Version 2)
Quarter: 2015Q1

REPORT INFORMATION
  Report Type: Spontaneous
  Country: US (occurrence: US)
  Receive Date: 20141230
  Receipt Date: 20150127
  Transmission Date: 20150720
  Serious: No
  Sender: FDA-Public Use
  Company Number: US-009507513-1412USA007277

PATIENT
  Sex: Male
  Weight: 72.56 kg

DRUGS (4)
  1. AFRIN [Suspect]
     Active Substance: OXYMETAZOLINE
     Indication: CHRONIC OBSTRUCTIVE PULMONARY DISEASE
     Dosage: UNK, QD
     Route: 045
     Dates: start: 200912
  2. COMBIVENT [Concomitant]
     Active Substance: ALBUTEROL SULFATE\IPRATROPIUM BROMIDE
     Indication: CHRONIC OBSTRUCTIVE PULMONARY DISEASE
     Dosage: UNK, UNKNOWN
  3. AFRIN [Suspect]
     Active Substance: OXYMETAZOLINE
     Indication: RESPIRATORY TRACT CONGESTION
  4. VENTOLIN [Concomitant]
     Active Substance: ALBUTEROL SULFATE
     Indication: CHRONIC OBSTRUCTIVE PULMONARY DISEASE
     Dosage: UNK, UNKNOWN

REACTIONS (5)
  - Rebound effect [Unknown]
  - Musculoskeletal stiffness [Unknown]
  - Product use issue [Unknown]
  - Memory impairment [Unknown]
  - Incorrect drug administration duration [Unknown]
